FAERS Safety Report 13948247 (Version 1)
Quarter: 2017Q3

REPORT INFORMATION
  Report Type: Spontaneous
  Country: US (occurrence: US)
  Receive Date: 20170907
  Receipt Date: 20170907
  Transmission Date: 20171128
  Serious: Yes (Disabling)
  Sender: FDA-Public Use
  Company Number: None

PATIENT
  Sex: Male
  Weight: 85.5 kg

DRUGS (3)
  1. CIPROFLOXACIN. [Suspect]
     Active Substance: CIPROFLOXACIN
     Indication: GASTROINTESTINAL INFECTION
     Dosage: ?          QUANTITY:14 TABLET(S);?
     Route: 048
     Dates: start: 20160108, end: 20160114
  2. ALPHA/BETA BLOCKERS [Concomitant]
  3. GABAPENTIN. [Concomitant]
     Active Substance: GABAPENTIN

REACTIONS (12)
  - Neuralgia [None]
  - Musculoskeletal pain [None]
  - Paraesthesia [None]
  - Tendon pain [None]
  - Muscular weakness [None]
  - Arthralgia [None]
  - Muscle spasms [None]
  - Neuropathy peripheral [None]
  - Depression [None]
  - Myalgia [None]
  - Neck pain [None]
  - Back pain [None]

NARRATIVE: CASE EVENT DATE: 20160108
